FAERS Safety Report 8446605-2 (Version None)
Quarter: 2012Q2

REPORT INFORMATION
  Report Type: 
  Country: None (occurrence: None)
  Receive Date: 20120619
  Receipt Date: 20120605
  Transmission Date: 20120825
  Serious: Yes (Other)
  Sender: FDA-Public Use
  Company Number: AR-AMGEN-ARGSP2012036175

PATIENT
  Age: 65 Year
  Sex: Female

DRUGS (4)
  1. LEFLUNOMIDE [Concomitant]
     Dosage: UNK
  2. ACYCLOVIR [Suspect]
     Dosage: 800 MG, UNK
  3. ENBREL [Suspect]
     Indication: RHEUMATOID ARTHRITIS
     Dosage: 50 MG, WEEKLY
     Route: 058
     Dates: start: 20101028, end: 20120501
  4. MEPREDNISONE [Concomitant]
     Dosage: UNK

REACTIONS (3)
  - APPENDICITIS [None]
  - LIVER DISORDER [None]
  - HERPES VIRUS INFECTION [None]
